FAERS Safety Report 13141203 (Version 1)
Quarter: 2017Q1

REPORT INFORMATION
  Report Type: Spontaneous
  Country: US (occurrence: US)
  Receive Date: 20170123
  Receipt Date: 20170123
  Transmission Date: 20170428
  Serious: No
  Sender: FDA-Public Use
  Company Number: None

PATIENT
  Age: 60 Year
  Sex: Female

DRUGS (4)
  1. ORENCIA [Suspect]
     Active Substance: ABATACEPT
     Indication: INSOMNIA
  2. ORENCIA [Suspect]
     Active Substance: ABATACEPT
     Indication: ESSENTIAL HYPERTENSION
  3. ORENCIA [Suspect]
     Active Substance: ABATACEPT
     Indication: ARTHROPATHY
  4. ORENCIA [Suspect]
     Active Substance: ABATACEPT
     Indication: CARDIAC DISORDER

REACTIONS (1)
  - Nasopharyngitis [None]

NARRATIVE: CASE EVENT DATE: 20170115
